FAERS Safety Report 8677975 (Version 2)
Quarter: 2015Q2

REPORT INFORMATION
  Report Type: Report from Study
  Country: GB (occurrence: GB)
  Receive Date: 20120723
  Receipt Date: 20150515
  Transmission Date: 20150821
  Serious: Yes (Hospitalization)
  Sender: FDA-Public Use
  Company Number: GB-ROCHE-1089931

PATIENT
  Age: 53 Year
  Sex: Male
  Weight: 68.8 kg

DRUGS (5)
  1. BEVACIZUMAB [Suspect]
     Active Substance: BEVACIZUMAB
     Indication: GASTRIC CANCER
     Dosage: DATE OF RECENT DRUG TAKEN:20/DEC/2012
     Route: 042
     Dates: start: 20111220
  2. CISPLATIN. [Suspect]
     Active Substance: CISPLATIN
     Indication: GASTRIC CANCER
     Dosage: DATE OF RECENT DRUG TAKEN:20/DEC/2011
     Route: 042
     Dates: start: 20111220
  3. CAPECITABINE. [Suspect]
     Active Substance: CAPECITABINE
     Indication: GASTRIC CANCER
     Dosage: DATE OF RECENT DRUG TAKEN:05/JAN/2012, MOST RECENT DOSE: 2300 MG
     Route: 048
     Dates: start: 20111220
  4. LANSOPRAZOLE. [Concomitant]
     Active Substance: LANSOPRAZOLE
     Route: 048
     Dates: start: 20111026
  5. EPIRUBICIN [Suspect]
     Active Substance: EPIRUBICIN
     Indication: GASTRIC CANCER
     Dosage: DATE OF RECENT DRUG TAKEN:20/DEC/2011
     Route: 042
     Dates: start: 20111220

REACTIONS (1)
  - Anastomotic leak [Recovered/Resolved]

NARRATIVE: CASE EVENT DATE: 20120212
